FAERS Safety Report 8555214-6 (Version None)
Quarter: 2012Q3

REPORT INFORMATION
  Report Type: 
  Country: None (occurrence: None)
  Receive Date: 20120731
  Receipt Date: 20120723
  Transmission Date: 20120928
  Serious: Yes (Other)
  Sender: FDA-Public Use
  Company Number: US-009507513-1207USA010606

PATIENT

DRUGS (6)
  1. DETROL LA [Suspect]
     Route: 048
  2. ATENOLOL (+) HYDROCHLOROTHIAZIDE [Concomitant]
  3. ZOCOR [Suspect]
     Dosage: 20 MG, QD
     Route: 048
  4. PREMARIN [Suspect]
     Dosage: 0.6 MG, UNK
     Route: 048
  5. LIPITOR [Suspect]
     Dosage: 10 MG, QD
     Route: 048
  6. DETROL [Suspect]
     Dosage: UNK, BID
     Route: 048

REACTIONS (2)
  - BLADDER DISORDER [None]
  - DRUG INEFFECTIVE [None]
